FAERS Safety Report 8398762-4 (Version None)
Quarter: 2012Q2

REPORT INFORMATION
  Report Type: 
  Country: None (occurrence: None)
  Receive Date: 20120531
  Receipt Date: 20120528
  Transmission Date: 20120825
  Serious: Yes (Hospitalization, Other)
  Sender: FDA-Public Use
  Company Number: PHHY2012BR045734

PATIENT
  Sex: Female
  Weight: 82 kg

DRUGS (12)
  1. LOSARTAN POTASSIUM [Concomitant]
     Dosage: 50 MG, UNK
     Route: 048
  2. PREDNISOLONE [Concomitant]
     Dosage: 5 MG, UNK
     Route: 048
  3. ATORVASTATIN CALCIUM [Concomitant]
     Dosage: 5 MG, UNK
     Route: 048
  4. CALCIUM CARBONATE [Concomitant]
     Dosage: 600 MG, UNK
     Route: 048
  5. BAMIFIX [Concomitant]
     Dosage: 300 MG, UNK
     Route: 048
  6. ORENCIA [Concomitant]
     Indication: RHEUMATOID ARTHRITIS
     Route: 042
  7. OMEPRAZOLE [Concomitant]
     Indication: NAUSEA
     Dosage: 20 MG, UNK
     Route: 048
  8. HYDROCHLOROTHIAZIDE [Concomitant]
  9. ONBREZ [Suspect]
     Indication: PULMONARY FIBROSIS
     Dosage: 150 UG, UNK
  10. LEVOTHYROXINE SODIUM [Concomitant]
     Indication: THYROID DISORDER
     Dosage: 150 UG, UNK
     Dates: start: 19940101
  11. AMIODARONE HCL [Concomitant]
     Dosage: 200 MG, UNK
     Route: 048
  12. SOMALGIN [Concomitant]
     Dosage: 100 MG, UNK
     Route: 048

REACTIONS (2)
  - PNEUMONIA [None]
  - FATIGUE [None]
